FAERS Safety Report 4577118-6 (Version None)
Quarter: 2005Q1

REPORT INFORMATION
  Report Type: 
  Country: None (occurrence: None)
  Receive Date: 20050207
  Receipt Date: 20050124
  Transmission Date: 20050727
  Serious: Yes (Other)
  Sender: FDA-Public Use
  Company Number: 200510058BCC

PATIENT
  Age: 57 Year
  Sex: Female
  Weight: 56.246 kg

DRUGS (8)
  1. BAYER MUSCLE + JOINT CREAM (CAMPHOR/EUCALYPTUS/MENTHOL/METHYL SALICYLA [Suspect]
     Indication: DIABETIC NEUROPATHY
     Dosage: ONCE, TOPICAL
     Route: 061
     Dates: start: 20050104
  2. BAYER MUSCLE + JOINT CREAM (CAMPHOR/EUCALYPTUS/MENTHOL/METHYL SALICYLA [Suspect]
     Indication: PROPHYLAXIS
     Dosage: ONCE, TOPICAL
     Route: 061
     Dates: start: 20050104
  3. BAYER REGIMEN 81MG ASPIRIN (ACETYLSALICYLIC ACID) [Suspect]
     Indication: MYOCARDIAL INFARCTION
     Dosage: 81 MG, QD, ORAL
     Route: 048
  4. INSULIN [Concomitant]
  5. ZANTAC [Concomitant]
  6. DURAGESIC [Concomitant]
  7. PROPACET 100 [Concomitant]
  8. HYDROCHLOROTHIAZIDE [Concomitant]

REACTIONS (6)
  - BLOOD GLUCOSE INCREASED [None]
  - BLOOD PRESSURE INCREASED [None]
  - BURNING SENSATION [None]
  - CHEST PAIN [None]
  - DYSPNOEA [None]
  - GASTROINTESTINAL ULCER [None]
